FAERS Safety Report 7024422-8 (Version None)
Quarter: 2010Q4

REPORT INFORMATION
  Report Type: 
  Country: None (occurrence: None)
  Receive Date: 20101001
  Receipt Date: 20100921
  Transmission Date: 20110411
  Serious: Yes (Hospitalization)
  Sender: FDA-Public Use
  Company Number: US-JNJFOC-20100305893

PATIENT
  Sex: Female
  Weight: 47.17 kg

DRUGS (2)
  1. MOTRIN [Suspect]
  2. MOTRIN [Suspect]
     Indication: PRODUCT USED FOR UNKNOWN INDICATION

REACTIONS (11)
  - ALANINE AMINOTRANSFERASE INCREASED [None]
  - BLOOD GLUCOSE INCREASED [None]
  - BRONCHIECTASIS [None]
  - BRONCHITIS [None]
  - DRUG INEFFECTIVE [None]
  - DYSURIA [None]
  - PHARYNGITIS [None]
  - PNEUMONIA VIRAL [None]
  - STAPHYLOCOCCAL SCALDED SKIN SYNDROME [None]
  - STEVENS-JOHNSON SYNDROME [None]
  - TOXIC EPIDERMAL NECROLYSIS [None]
